FAERS Safety Report 7432836-7 (Version None)
Quarter: 2011Q2

REPORT INFORMATION
  Report Type: 
  Country: None (occurrence: None)
  Receive Date: 20110422
  Receipt Date: 20110418
  Transmission Date: 20111010
  Serious: Yes (Hospitalization)
  Sender: FDA-Public Use
  Company Number: DE-ABBOTT-11P-062-0720597-00

PATIENT
  Sex: Female

DRUGS (2)
  1. HUMIRA [Suspect]
     Indication: PRODUCT USED FOR UNKNOWN INDICATION
  2. ENBREL [Suspect]
     Indication: PSORIATIC ARTHROPATHY
     Dosage: 2X/WEEK
     Dates: start: 20110408

REACTIONS (5)
  - ARTHRALGIA [None]
  - PSORIATIC ARTHROPATHY [None]
  - LACERATION [None]
  - GAIT DISTURBANCE [None]
  - HAEMORRHAGE [None]
